FAERS Safety Report 5926075-6 (Version None)
Quarter: 2008Q4

REPORT INFORMATION
  Report Type: 
  Country: None (occurrence: None)
  Receive Date: 20081016
  Receipt Date: 20080930
  Transmission Date: 20090506
  Serious: Yes (Other)
  Sender: FDA-Public Use
  Company Number: 8037605

PATIENT
  Age: 56 Year
  Sex: Male

DRUGS (4)
  1. PREDNISOLONE [Suspect]
  2. MYCOPHENOLATE MOFETIL [Suspect]
  3. BASILIXIMAB [Suspect]
  4. CYCLOSPORINE [Suspect]

REACTIONS (4)
  - DRUG LEVEL INCREASED [None]
  - NEUROTOXICITY [None]
  - PNEUMOCYSTIS JIROVECI PNEUMONIA [None]
  - REVERSIBLE POSTERIOR LEUKOENCEPHALOPATHY SYNDROME [None]
